FAERS Safety Report 17659446 (Version 1)
Quarter: 2020Q2

REPORT INFORMATION
  Report Type: Spontaneous
  Country: US (occurrence: US)
  Receive Date: 20200413
  Receipt Date: 20200413
  Transmission Date: 20200713
  Serious: No
  Sender: FDA-Public Use
  Company Number: US-CIPLA LTD.-2020US00351

PATIENT

DRUGS (12)
  1. VITAMIN D [VITAMIN D NOS] [Concomitant]
     Active Substance: VITAMIN D NOS
     Indication: PRODUCT USED FOR UNKNOWN INDICATION
     Dosage: 2000 IU, PER DAY
     Route: 065
     Dates: start: 2013
  2. METFORMIN [Concomitant]
     Active Substance: METFORMIN HYDROCHLORIDE
     Indication: DIABETES MELLITUS
     Dosage: 500 MILLIGRAM, BID
     Route: 065
     Dates: start: 2013
  3. SYNTHROID [Concomitant]
     Active Substance: LEVOTHYROXINE SODIUM
     Indication: THYROID DISORDER
     Dosage: 100 MILLIGRAM, QD
     Route: 065
     Dates: start: 1985
  4. ZOLOFT [Concomitant]
     Active Substance: SERTRALINE HYDROCHLORIDE
     Indication: OBSESSIVE-COMPULSIVE DISORDER
     Dosage: 100 MILLIGRAM, QD
     Route: 065
     Dates: start: 2015
  5. AMBIEN [Concomitant]
     Active Substance: ZOLPIDEM TARTRATE
     Indication: SLEEP DISORDER
     Dosage: 10 MILLIGRAM, PRN
     Route: 065
     Dates: start: 2013
  6. NIACIN. [Concomitant]
     Active Substance: NIACIN
     Indication: CARDIAC DISORDER
     Dosage: 500 MILLIGRAM, QD
     Route: 065
     Dates: start: 2010
  7. ANDROGEL [Concomitant]
     Active Substance: TESTOSTERONE
     Indication: PRODUCT USED FOR UNKNOWN INDICATION
     Dosage: UNK
     Route: 065
  8. METOPROLOL. [Concomitant]
     Active Substance: METOPROLOL
     Indication: HYPERTENSION
     Dosage: 25 MILLIGRAM, QD
     Route: 065
     Dates: start: 1990
  9. LIPITOR [Concomitant]
     Active Substance: ATORVASTATIN CALCIUM
     Indication: BLOOD CHOLESTEROL ABNORMAL
     Dosage: 40 MILLIGRAM, QD
     Route: 065
     Dates: start: 2005
  10. TESTOSTERONE. [Suspect]
     Active Substance: TESTOSTERONE
     Indication: ORCHIDECTOMY
     Dosage: 1 ML, EVERY 3 WEEKS
     Route: 065
     Dates: start: 2000
  11. TESTOSTERONE. [Suspect]
     Active Substance: TESTOSTERONE
     Dosage: 1 ML, EVERY 3 WEEKS, FROM 6 MONTHS FROM THE SAME VIAL
     Route: 065
     Dates: start: 20190701
  12. BRILINTA [Concomitant]
     Active Substance: TICAGRELOR
     Indication: ANTIPLATELET THERAPY
     Dosage: 60 MILLIGRAM, BID
     Route: 065
     Dates: start: 2015

REACTIONS (2)
  - Product use issue [Unknown]
  - Product administration error [Unknown]

NARRATIVE: CASE EVENT DATE: 2019
